FAERS Safety Report 17537805 (Version 1)
Quarter: 2020Q1

REPORT INFORMATION
  Report Type: Report from Study
  Country: None (occurrence: US)
  Receive Date: 20200313
  Receipt Date: 20200313
  Transmission Date: 20200409
  Serious: Yes (Other)
  Sender: FDA-Public Use
  Company Number: US-ABBVIE-20K-163-3311071-00

PATIENT
  Sex: Female

DRUGS (1)
  1. HUMIRA [Suspect]
     Active Substance: ADALIMUMAB
     Indication: PSORIASIS
     Route: 058

REACTIONS (6)
  - Gait disturbance [Unknown]
  - Skin plaque [Unknown]
  - Skin discolouration [Unknown]
  - Spinal disorder [Unknown]
  - Drug ineffective [Unknown]
  - Macular degeneration [Unknown]
